FAERS Safety Report 12162245 (Version 1)
Quarter: 2016Q1

REPORT INFORMATION
  Report Type: Spontaneous
  Country: US (occurrence: US)
  Receive Date: 20160309
  Receipt Date: 20160309
  Transmission Date: 20160526
  Serious: Yes (Other)
  Sender: FDA-Public Use
  Company Number: US-ROCHE-1723171

PATIENT
  Age: 76 Year
  Sex: Male

DRUGS (1)
  1. ESBRIET [Suspect]
     Active Substance: PIRFENIDONE
     Indication: IDIOPATHIC PULMONARY FIBROSIS
     Route: 048
     Dates: start: 201603

REACTIONS (4)
  - Dizziness [Unknown]
  - Nausea [Unknown]
  - Dyspnoea [Unknown]
  - Myalgia [Unknown]

NARRATIVE: CASE EVENT DATE: 201603
